FAERS Safety Report 17636564 (Version 4)
Quarter: 2022Q1

REPORT INFORMATION
  Report Type: Spontaneous
  Country: US (occurrence: US)
  Receive Date: 20200407
  Receipt Date: 20220204
  Transmission Date: 20220424
  Serious: No
  Sender: FDA-Public Use
  Company Number: US-PFIZER INC-2019178968

PATIENT
  Age: 54 Year
  Sex: Male
  Weight: 99.79 kg

DRUGS (5)
  1. LYRICA [Suspect]
     Active Substance: PREGABALIN
     Indication: Congenital neuropathy
     Dosage: 150 MG, 2X/DAY (ONE CAPSULE TWICE A DAY BY MOUTH)
     Route: 048
     Dates: start: 2018
  2. LYRICA [Suspect]
     Active Substance: PREGABALIN
     Indication: Benign prostatic hyperplasia
     Dosage: 300 MG, 2X/DAY
     Route: 048
     Dates: end: 202104
  3. LYRICA [Suspect]
     Active Substance: PREGABALIN
     Indication: Urinary tract disorder
  4. LYRICA [Suspect]
     Active Substance: PREGABALIN
     Indication: Pain
  5. LYRICA [Suspect]
     Active Substance: PREGABALIN
     Indication: Neuropathy peripheral

REACTIONS (3)
  - Paraesthesia [Unknown]
  - Protrusion tongue [Unknown]
  - Feeling abnormal [Unknown]
